FAERS Safety Report 11108303 (Version 2)
Quarter: 2015Q3

REPORT INFORMATION
  Report Type: Spontaneous
  Country: NO (occurrence: NO)
  Receive Date: 20150512
  Receipt Date: 20150805
  Transmission Date: 20151125
  Serious: Yes (Hospitalization, Other)
  Sender: FDA-Public Use
  Company Number: NO-ALLERGAN-1508811US

PATIENT
  Age: 12 Year
  Sex: Female
  Weight: 50 kg

DRUGS (1)
  1. BOTOX [Suspect]
     Active Substance: ONABOTULINUMTOXINA
     Indication: STRABISMUS
     Dosage: UNK UNK, SINGLE
     Route: 030
     Dates: start: 20150320, end: 20150320

REACTIONS (11)
  - Muscular weakness [Recovered/Resolved]
  - Mental impairment [Unknown]
  - Headache [Recovered/Resolved]
  - Pallor [Recovered/Resolved]
  - Dizziness [Recovered/Resolved]
  - Muscle spasticity [Unknown]
  - Monoparesis [Recovered/Resolved]
  - Hyperhidrosis [Recovered/Resolved]
  - Gait disturbance [Unknown]
  - Dysarthria [Unknown]
  - Drug ineffective [Unknown]

NARRATIVE: CASE EVENT DATE: 20150324
